FAERS Safety Report 10220299 (Version 2)
Quarter: 2014Q2

REPORT INFORMATION
  Report Type: Report from Study
  Country: IT (occurrence: IT)
  Receive Date: 20140606
  Receipt Date: 20140606
  Transmission Date: 20141212
  Serious: Yes (Death, Life-Threatening, Hospitalization)
  Sender: FDA-Public Use
  Company Number: IT-ROCHE-1145314

PATIENT
  Age: 75 Year
  Sex: Male
  Weight: 70 kg

DRUGS (28)
  1. OBINUTUZUMAB [Suspect]
     Indication: DIFFUSE LARGE B-CELL LYMPHOMA
     Dosage: DOSE CONCENTRATION OF LAST DOSE TAKEN: 4 MG/ML; DATE OF MOST RECENT DOSE PRIOR TO SAE: 05/OCT/2012
     Route: 042
     Dates: start: 20120928
  2. CYCLOPHOSPHAMIDE [Suspect]
     Indication: DIFFUSE LARGE B-CELL LYMPHOMA
     Dosage: DATE OF MOST RECENT DOSE PRIOR TO SAE: 28/SEP/2012
     Route: 042
     Dates: start: 20120928
  3. DOXORUBICIN HYDROCHLORIDE [Suspect]
     Indication: DIFFUSE LARGE B-CELL LYMPHOMA
     Dosage: DATE OF MOST RECENT DOSE PRIOR TO SAE: 28/SEP/2012
     Route: 042
     Dates: start: 20120928
  4. VINCRISTINE [Suspect]
     Indication: DIFFUSE LARGE B-CELL LYMPHOMA
     Dosage: DATE OF MOST RECENT DOSE PRIOR TO SAE: 28/SEP/2012
     Route: 050
     Dates: start: 20120928
  5. PREDNISONE [Suspect]
     Indication: DIFFUSE LARGE B-CELL LYMPHOMA
     Dosage: DATE OF MOST RECENT DOSE PRIOR TO SAE: 02/OCT/2012
     Route: 042
     Dates: start: 20120928
  6. OXYCONTIN [Concomitant]
     Indication: PAIN
     Route: 065
     Dates: start: 20120918, end: 20121106
  7. CLEXANE [Concomitant]
     Indication: THROMBOSIS PROPHYLAXIS
     Route: 065
     Dates: end: 20121106
  8. SEREUPIN [Concomitant]
     Indication: PROPHYLAXIS
     Route: 065
     Dates: end: 20121106
  9. ZYLORIC [Concomitant]
     Indication: PROPHYLAXIS
     Route: 065
     Dates: start: 20120928, end: 20121001
  10. ZANTAC [Concomitant]
     Indication: PROPHYLAXIS
     Route: 065
     Dates: start: 20120918, end: 20121005
  11. ZANTAC [Concomitant]
     Route: 065
     Dates: start: 20121009, end: 20121016
  12. ZANTAC [Concomitant]
     Route: 065
     Dates: start: 20121026, end: 20121105
  13. MAALOX (CALCIUM CARBONATE) [Concomitant]
     Indication: PROPHYLAXIS
     Route: 065
     Dates: start: 20120920, end: 20120928
  14. DIFLUCAN [Concomitant]
     Indication: PROPHYLAXIS
     Route: 065
     Dates: start: 20121005, end: 20121106
  15. LANSOX [Concomitant]
     Indication: PROPHYLAXIS
     Route: 065
     Dates: start: 20121005, end: 20121106
  16. AMLODIPINE [Concomitant]
     Indication: HYPERTENSION
     Route: 065
     Dates: end: 20121106
  17. METILPREDNISOLONA [Concomitant]
     Route: 065
     Dates: start: 20121003, end: 20121005
  18. METILPREDNISOLONA [Concomitant]
     Route: 065
     Dates: start: 20120919, end: 20120927
  19. KAYEXALATE [Concomitant]
     Route: 065
     Dates: start: 20120920, end: 20120920
  20. FASTURTEC [Concomitant]
     Indication: HYPERURICAEMIA
     Route: 065
     Dates: start: 20120920, end: 20120920
  21. PARACETAMOL [Concomitant]
     Route: 065
     Dates: start: 20120928, end: 20121005
  22. TRIMETON (ITALY) [Concomitant]
     Route: 065
     Dates: start: 20120928, end: 20121005
  23. URBASON [Concomitant]
     Route: 065
     Dates: start: 20120928, end: 20121005
  24. URBASON [Concomitant]
     Route: 065
     Dates: start: 20121026, end: 20121105
  25. URBASON [Concomitant]
     Route: 065
     Dates: start: 20121016, end: 20121017
  26. URBASON [Concomitant]
     Route: 065
     Dates: start: 20121012, end: 20121012
  27. URBASON [Concomitant]
     Route: 065
     Dates: start: 20121016, end: 20121017
  28. LASIX [Concomitant]
     Route: 065
     Dates: start: 20121015, end: 20121102

REACTIONS (1)
  - Febrile neutropenia [Fatal]
